FAERS Safety Report 9464744 (Version 1)
Quarter: 2013Q3

REPORT INFORMATION
  Report Type: Report from Study
  Country: US (occurrence: US)
  Receive Date: 20130819
  Receipt Date: 20130819
  Transmission Date: 20140515
  Serious: Yes (Congenital Anomaly)
  Sender: FDA-Public Use
  Company Number: US-VIIV HEALTHCARE LIMITED-A1038012A

PATIENT
  Age: 0 Year
  Sex: Female
  Weight: .8 kg

DRUGS (1)
  1. RETROVIR [Suspect]
     Indication: ANTIRETROVIRAL THERAPY
     Route: 064
     Dates: start: 20111129, end: 20111129

REACTIONS (7)
  - Intraventricular haemorrhage neonatal [Unknown]
  - Patent ductus arteriosus [Unknown]
  - Respiratory failure [Unknown]
  - Anaemia neonatal [Unknown]
  - Premature baby [Unknown]
  - Atrial septal defect [Unknown]
  - Foetal exposure during pregnancy [Unknown]
